FAERS Safety Report 6334643 (Version 4)
Quarter: 2013Q4

REPORT INFORMATION
  Report Type: Report from Study
  Country: US (occurrence: US)
  Receive Date: 20070615
  Receipt Date: 20131216
  Transmission Date: 20140711
  Serious: Yes (Congenital Anomaly, Other)
  Sender: FDA-Public Use
  Company Number: US-GILEAD-2007-0012399

PATIENT
  Sex: Male
  Weight: 3.57 kg

DRUGS (3)
  1. EFAVIRENZ/EMTRICITABINE/TENOFOVIR DISOPROXIL FUMARATE [Suspect]
     Indication: HIV INFECTION
     Route: 064
     Dates: start: 20061128, end: 20070604
  2. ZIDOVUDINE [Concomitant]
     Indication: HIV INFECTION
     Route: 064
     Dates: start: 20070605, end: 20070605
  3. ZIDOVUDINE [Concomitant]
     Route: 064
     Dates: start: 20070605, end: 20070605

REACTIONS (1)
  - Congenital naevus [Unknown]
